FAERS Safety Report 9776041 (Version 2)
Quarter: 2014Q1

REPORT INFORMATION
  Report Type: Spontaneous
  Country: US (occurrence: US)
  Receive Date: 20131220
  Receipt Date: 20140214
  Transmission Date: 20141002
  Serious: Yes (Other)
  Sender: FDA-Public Use
  Company Number: US-ELI_LILLY_AND_COMPANY-US201312004258

PATIENT
  Age: 40 Year
  Sex: Female
  Weight: 55.33 kg

DRUGS (7)
  1. CYMBALTA [Suspect]
     Indication: NEURALGIA
     Dosage: 30 MG, QD
     Route: 048
     Dates: start: 20131204, end: 20131204
  2. NORCO [Concomitant]
     Indication: PRODUCT USED FOR UNKNOWN INDICATION
     Dosage: 10/325 MG, PRN
     Route: 065
  3. VITAMIN B [Concomitant]
  4. VITAMIN C                          /00008001/ [Concomitant]
  5. VITAMIN D                          /00107901/ [Concomitant]
  6. LOMOTIL [Concomitant]
     Dosage: 2.5/0.025 MG, PRN
     Route: 065
  7. PREDNISONE [Concomitant]
     Dosage: 5 MG, QD
     Route: 065

REACTIONS (6)
  - Dyspnoea [Recovered/Resolved]
  - Bronchospasm [Recovered/Resolved]
  - Chest discomfort [Recovered/Resolved]
  - Hypersensitivity [Recovered/Resolved]
  - Off label use [Unknown]
  - Nausea [Recovered/Resolved]
